FAERS Safety Report 15759475 (Version 1)
Quarter: 2018Q4

REPORT INFORMATION
  Report Type: Spontaneous
  Country: DE (occurrence: DE)
  Receive Date: 20181226
  Receipt Date: 20181226
  Transmission Date: 20190205
  Serious: Yes (Hospitalization)
  Sender: FDA-Public Use
  Company Number: DE-BAXTER-2018BAX030870

PATIENT
  Sex: Female

DRUGS (3)
  1. CELLCEPT [Concomitant]
     Active Substance: MYCOPHENOLATE MOFETIL\MYCOPHENOLATE MOFETIL HYDROCHLORIDE
     Indication: BONE MARROW TRANSPLANT
     Route: 065
     Dates: start: 200101
  2. ENDOXAN 1G [Suspect]
     Active Substance: CYCLOPHOSPHAMIDE
     Indication: CHRONIC MYELOID LEUKAEMIA
     Route: 065
     Dates: start: 200003
  3. SANDIMMUN [Suspect]
     Active Substance: CYCLOSPORINE
     Indication: BONE MARROW TRANSPLANT
     Route: 065
     Dates: start: 200003, end: 200101

REACTIONS (7)
  - Loss of consciousness [Unknown]
  - Polyneuropathy [Unknown]
  - Paraesthesia [Unknown]
  - Leukoencephalopathy [Unknown]
  - Tremor [Unknown]
  - Demyelination [Unknown]
  - Ataxia [Unknown]

NARRATIVE: CASE EVENT DATE: 200003
